FAERS Safety Report 6286377-3 (Version None)
Quarter: 2009Q4

REPORT INFORMATION
  Report Type: 
  Country: None (occurrence: None)
  Receive Date: 20090727
  Receipt Date: 20090727
  Transmission Date: 20100525
  Serious: No
  Sender: FDA-Public Use
  Company Number: None

PATIENT
  Age: 42 Year
  Sex: Male

DRUGS (1)
  1. BACTRIM [Suspect]
     Dates: start: 20071227, end: 20071231

REACTIONS (4)
  - BILIARY DILATATION [None]
  - BILIARY TRACT INFECTION [None]
  - CHOLANGITIS [None]
  - LIVER INJURY [None]
